FAERS Safety Report 8756418 (Version 1)
Quarter: 2012Q4

REPORT INFORMATION
  Report Type: 
  Country: US (occurrence: US)
  Receive Date: 20120828
  Receipt Date: 20120828
  Transmission Date: 20130627
  Serious: No
  Sender: FDA-Public Use
  Company Number: US-009507513-1206USA02913

PATIENT

DRUGS (4)
  1. JANUMET [Suspect]
     Indication: TYPE 2 DIABETES MELLITUS
     Dosage: 50mg/1000
     Route: 048
     Dates: start: 20120421, end: 20120716
  2. LABETALOL HYDROCHLORIDE [Concomitant]
  3. PROTONIX [Concomitant]
  4. VENTOLIN (ALBUTEROL) [Concomitant]

REACTIONS (1)
  - Muscle spasms [Recovered/Resolved]
